FAERS Safety Report 11766336 (Version 2)
Quarter: 2015Q4

REPORT INFORMATION
  Report Type: Spontaneous
  Country: IT (occurrence: IT)
  Receive Date: 20151123
  Receipt Date: 20151203
  Transmission Date: 20160304
  Serious: Yes (Other)
  Sender: FDA-Public Use
  Company Number: IT-CIPLA LTD.-2015IT08634

PATIENT

DRUGS (4)
  1. EPIRUBICIN [Suspect]
     Active Substance: EPIRUBICIN
     Indication: SOFT TISSUE SARCOMA
     Dosage: 60 MG/M2 PER DAY ON DAYS 1 AND 2
     Route: 042
     Dates: start: 20040326, end: 20040327
  2. IFOSFAMIDE. [Suspect]
     Active Substance: IFOSFAMIDE
     Indication: SOFT TISSUE SARCOMA
     Dosage: 3,000MG/M2 PER DAY ON DAYS 1, 2 AND 3
     Route: 065
  3. MESNA. [Suspect]
     Active Substance: MESNA
     Indication: SOFT TISSUE SARCOMA
     Dosage: 1,000 MG/M2 THREE TIMES PER DAY ON DAYS 1, 2, AND 3
     Route: 065
  4. GRANULOCYTE STIMULATING FACTOR [Suspect]
     Active Substance: GRANULOCYTE COLONY-STIMULATING FACTOR NOS
     Indication: SOFT TISSUE SARCOMA
     Dosage: 300 MICROGRAM/D (STARTING DAY 7 TO DAY 14 )
     Route: 065

REACTIONS (1)
  - Disease recurrence [Recovered/Resolved]

NARRATIVE: CASE EVENT DATE: 20150327
